FAERS Safety Report 24730449 (Version 7)
Quarter: 2025Q4

REPORT INFORMATION
  Report Type: Report from Study
  Country: US (occurrence: US)
  Receive Date: 20241213
  Receipt Date: 20251219
  Transmission Date: 20260118
  Serious: Yes (Hospitalization, Other)
  Sender: TAKEDA
  Company Number: US-TAKEDA-2024TUS123429

PATIENT
  Age: 77 Year
  Sex: Male
  Weight: 68 kg

DRUGS (2)
  1. GLASSIA [Suspect]
     Active Substance: .ALPHA.1-PROTEINASE INHIBITOR HUMAN
     Indication: Alpha-1 antitrypsin deficiency
     Dosage: 90 MILLIGRAM/KILOGRAM, 1/WEEK
     Dates: start: 20210524
  2. GLASSIA [Suspect]
     Active Substance: .ALPHA.1-PROTEINASE INHIBITOR HUMAN

REACTIONS (12)
  - Pulmonary hypertension [Unknown]
  - Pyrexia [Unknown]
  - Pseudomonas infection [Unknown]
  - Cough [Unknown]
  - Dyspnoea [Unknown]
  - Arthralgia [Unknown]
  - Gait disturbance [Unknown]
  - Discomfort [Unknown]
  - Nasopharyngitis [Unknown]
  - Throat irritation [Unknown]
  - Limb injury [Recovering/Resolving]
  - Fall [Recovering/Resolving]
